FAERS Safety Report 8130282-4 (Version None)
Quarter: 2012Q1

REPORT INFORMATION
  Report Type: 
  Country: None (occurrence: None)
  Receive Date: 20120210
  Receipt Date: 20120203
  Transmission Date: 20120608
  Serious: Yes (Hospitalization)
  Sender: FDA-Public Use
  Company Number: PHEH2012US003296

PATIENT
  Sex: Female

DRUGS (11)
  1. GILENYA [Suspect]
     Indication: MULTIPLE SCLEROSIS
     Dosage: 0.5 MG, QD
     Route: 048
     Dates: start: 20110701
  2. LIPITOR [Concomitant]
     Dosage: 20 MG, UNK
  3. DIPHENHYDRAMINE HCL [Concomitant]
  4. EPIPEN [Concomitant]
  5. COPAXONE [Concomitant]
  6. GAMMAGARD [Concomitant]
  7. ZOLOFT [Concomitant]
     Dosage: 100 MG, UNK
  8. HEPARIN [Concomitant]
  9. MULTI-VITAMINS [Concomitant]
  10. FLO [Concomitant]
  11. CELEBREX [Concomitant]
     Dosage: 200 MG, UNK

REACTIONS (3)
  - DYSARTHRIA [None]
  - GAIT DISTURBANCE [None]
  - DISORIENTATION [None]
